FAERS Safety Report 17179707 (Version 9)
Quarter: 2020Q4

REPORT INFORMATION
  Report Type: Other
  Country: NL (occurrence: NL)
  Receive Date: 20191220
  Receipt Date: 20201221
  Transmission Date: 20210113
  Serious: Yes (Hospitalization)
  Sender: FDA-Public Use
  Company Number: NL-ROCHE-2502074

PATIENT
  Age: 72 Year
  Sex: Male
  Weight: 93 kg

DRUGS (13)
  1. ATEZOLIZUMAB. [Suspect]
     Active Substance: ATEZOLIZUMAB
     Indication: NON-SMALL CELL LUNG CANCER
     Dosage: DATE OF MOST RECENT DOSE OF ATEZOLIZUMAB PRIOR TO SAE ONSET:09/DEC/2019
     Route: 041
     Dates: start: 20191209
  2. ACETYLSALICYLIC ACID [Concomitant]
     Active Substance: ASPIRIN
     Indication: BACK PAIN
     Dates: start: 20191111, end: 20200127
  3. AZITROMYCINE [Concomitant]
     Active Substance: AZITHROMYCIN
     Indication: MALAISE
     Dates: start: 20200109, end: 20200109
  4. PREGABALIN. [Concomitant]
     Active Substance: PREGABALIN
     Dates: start: 20191220, end: 20200124
  5. MIDAZOLAM. [Concomitant]
     Active Substance: MIDAZOLAM
     Indication: INSOMNIA
     Dates: start: 20200126, end: 20200127
  6. MORFINE [Concomitant]
     Active Substance: MORPHINE
     Indication: DYSPNOEA
     Dates: start: 20200126, end: 20200129
  7. PANTOPRAZOLE [Concomitant]
     Active Substance: PANTOPRAZOLE
     Indication: ABDOMINAL PAIN UPPER
     Dates: start: 20191111, end: 20200127
  8. ATEZOLIZUMAB. [Suspect]
     Active Substance: ATEZOLIZUMAB
     Route: 042
     Dates: start: 20200106
  9. FENTANYL. [Concomitant]
     Active Substance: FENTANYL
     Dates: start: 20191218, end: 20200127
  10. METOCLOPRAMID [Concomitant]
     Active Substance: METOCLOPRAMIDE
     Dates: start: 20191212, end: 20200128
  11. OXAZEPAM. [Concomitant]
     Active Substance: OXAZEPAM
     Indication: INSOMNIA
     Dates: start: 20200107, end: 20200127
  12. ZOPICLONE [Concomitant]
     Active Substance: ZOPICLONE
     Indication: INSOMNIA
     Dates: start: 20200114, end: 20200126
  13. PARACETAMOL [Concomitant]
     Active Substance: ACETAMINOPHEN
     Indication: MALAISE
     Dates: start: 20191214, end: 20200126

REACTIONS (5)
  - Pyrexia [Recovered/Resolved]
  - Anxiety [Not Recovered/Not Resolved]
  - Abdominal pain upper [Not Recovered/Not Resolved]
  - Malaise [Recovered/Resolved]
  - Insomnia [Not Recovered/Not Resolved]

NARRATIVE: CASE EVENT DATE: 20191212
